FAERS Safety Report 13477682 (Version 1)
Quarter: 2017Q2

REPORT INFORMATION
  Report Type: Spontaneous
  Country: US (occurrence: US)
  Receive Date: 20170425
  Receipt Date: 20170425
  Transmission Date: 20170830
  Serious: Yes (Life-Threatening, Other)
  Sender: FDA-Public Use
  Company Number: None

PATIENT
  Age: 37 Year
  Sex: Male
  Weight: 40.1 kg

DRUGS (1)
  1. CARBAMAZEPINE. [Suspect]
     Active Substance: CARBAMAZEPINE
     Indication: SEIZURE
     Route: 048
     Dates: start: 20161230, end: 20170101

REACTIONS (5)
  - Respiration abnormal [None]
  - Musculoskeletal disorder [None]
  - Anticonvulsant drug level increased [None]
  - Confusional state [None]
  - Extra dose administered [None]

NARRATIVE: CASE EVENT DATE: 20161230
